FAERS Safety Report 14518096 (Version 2)
Quarter: 2018Q1

REPORT INFORMATION
  Report Type: Spontaneous
  Country: JP (occurrence: JP)
  Receive Date: 20180212
  Receipt Date: 20180316
  Transmission Date: 20180509
  Serious: Yes (Other)
  Sender: FDA-Public Use
  Company Number: PHJP2018JP002906

PATIENT
  Age: 66 Year
  Sex: Male

DRUGS (8)
  1. TRERIEF [Concomitant]
     Active Substance: ZONISAMIDE
     Indication: PRODUCT USED FOR UNKNOWN INDICATION
     Dosage: 25 MG, UNK
     Route: 065
  2. REQUIP [Concomitant]
     Active Substance: ROPINIROLE HYDROCHLORIDE
     Indication: PRODUCT USED FOR UNKNOWN INDICATION
     Dosage: 2 MG, UNK
     Route: 065
  3. NEUPRO [Concomitant]
     Active Substance: ROTIGOTINE
     Dosage: 27 MG, UNK
     Route: 061
  4. NEUPRO [Concomitant]
     Active Substance: ROTIGOTINE
     Dosage: 18 MG, UNK
     Route: 061
  5. COMTAN [Suspect]
     Active Substance: ENTACAPONE
     Indication: THERAPEUTIC RESPONSE SHORTENED
  6. NEUPRO [Concomitant]
     Active Substance: ROTIGOTINE
     Indication: PRODUCT USED FOR UNKNOWN INDICATION
     Dosage: 2.25 MG, UNK
     Route: 061
  7. COMTAN [Suspect]
     Active Substance: ENTACAPONE
     Indication: PARKINSON^S DISEASE
     Dosage: 300 MG, UNK
     Route: 048
  8. MENESIT [Concomitant]
     Active Substance: CARBIDOPA\LEVODOPA
     Indication: PRODUCT USED FOR UNKNOWN INDICATION
     Dosage: 450 MG, UNK
     Route: 065

REACTIONS (6)
  - Gastric ulcer [Recovered/Resolved]
  - Abdominal pain upper [Recovered/Resolved]
  - Abdominal pain lower [Recovered/Resolved]
  - Therapeutic response shortened [Recovering/Resolving]
  - Parkinson^s disease [Recovering/Resolving]
  - Nausea [Recovering/Resolving]
